FAERS Safety Report 6682726-2 (Version None)
Quarter: 2010Q2

REPORT INFORMATION
  Report Type: 
  Country: None (occurrence: None)
  Receive Date: 20100413
  Receipt Date: 20100329
  Transmission Date: 20101027
  Serious: Yes (Death)
  Sender: FDA-Public Use
  Company Number: KV200900810

PATIENT
  Age: 82 Year
  Sex: Female

DRUGS (1)
  1. MORPHINE SULFATE [Suspect]
     Indication: PROCEDURAL PAIN
     Dosage: ORAL
     Route: 048
     Dates: start: 20080601, end: 20080721

REACTIONS (2)
  - PRODUCT QUALITY ISSUE [None]
  - UTERINE CANCER [None]
